FAERS Safety Report 8533164-9 (Version None)
Quarter: 2012Q3

REPORT INFORMATION
  Report Type: 
  Country: None (occurrence: None)
  Receive Date: 20120724
  Receipt Date: 20120716
  Transmission Date: 20120928
  Serious: Yes (Other)
  Sender: FDA-Public Use
  Company Number: US-JNJFOC-20120708943

PATIENT
  Sex: Female
  Weight: 62.6 kg

DRUGS (2)
  1. LEVAQUIN [Suspect]
     Indication: PNEUMONIA
     Route: 042
     Dates: start: 20120201, end: 20120201
  2. LEVAQUIN [Suspect]
     Route: 048
     Dates: start: 20120201, end: 20120201

REACTIONS (7)
  - PRESYNCOPE [None]
  - INJECTION SITE RASH [None]
  - NERVOUS SYSTEM DISORDER [None]
  - FEELING ABNORMAL [None]
  - ABASIA [None]
  - LIGAMENT DISORDER [None]
  - FATIGUE [None]
